FAERS Safety Report 8157701-1 (Version None)
Quarter: 2012Q1

REPORT INFORMATION
  Report Type: 
  Country: None (occurrence: None)
  Receive Date: 20120222
  Receipt Date: 20120214
  Transmission Date: 20120608
  Serious: Yes (Disabling, Other)
  Sender: FDA-Public Use
  Company Number: CH-ASTRAZENECA-2008PK01477

PATIENT
  Age: 21165 Day
  Sex: Male
  Weight: 101 kg

DRUGS (1)
  1. MEPIVACAINE HYDROCHLORIDE [Suspect]
     Indication: VITRECTOMY
     Route: 056
     Dates: start: 20070228, end: 20070228

REACTIONS (1)
  - RETINAL ARTERY OCCLUSION [None]
